FAERS Safety Report 6003236-1 (Version None)
Quarter: 2008Q4

REPORT INFORMATION
  Report Type: 
  Country: None (occurrence: None)
  Receive Date: 20081212
  Receipt Date: 20081205
  Transmission Date: 20090506
  Serious: Yes (Hospitalization)
  Sender: FDA-Public Use
  Company Number: P-SEA84-12-40

PATIENT
  Age: 24 Year
  Sex: Female

DRUGS (3)
  1. SEASONALE [Suspect]
     Indication: CONTRACEPTION
     Dosage: 1 TABLET ORAL
     Route: 048
     Dates: start: 20080830, end: 20081101
  2. HUMIRA [Concomitant]
  3. PREDNISONE [Concomitant]

REACTIONS (3)
  - HEART RATE INCREASED [None]
  - OEDEMA [None]
  - WEIGHT INCREASED [None]
